FAERS Safety Report 5770809-0 (Version None)
Quarter: 2008Q2

REPORT INFORMATION
  Report Type: 
  Country: None (occurrence: None)
  Receive Date: 20080613
  Receipt Date: 20080513
  Transmission Date: 20081010
  Serious: No
  Sender: FDA-Public Use
  Company Number: US-ABBOTT-08P-163-0451650-00

PATIENT
  Sex: Male
  Weight: 100.79 kg

DRUGS (4)
  1. HUMIRA [Suspect]
     Indication: ANKYLOSING SPONDYLITIS
     Route: 050
     Dates: start: 20080513
  2. CELECOXIB [Concomitant]
     Indication: INFLAMMATION
     Route: 048
  3. HYDROCODONE [Concomitant]
     Indication: PAIN
     Route: 048
  4. BACLOFEN [Concomitant]
     Indication: PAIN
     Dosage: 1 MORNING DEPENDS ON WHETHER OR NOT HYDROCODONE WORKING
     Route: 048

REACTIONS (1)
  - ACCIDENTAL EXPOSURE [None]
